FAERS Safety Report 19503552 (Version 1)
Quarter: 2021Q3

REPORT INFORMATION
  Report Type: Spontaneous
  Country: JP (occurrence: JP)
  Receive Date: 20210707
  Receipt Date: 20210707
  Transmission Date: 20211014
  Serious: Yes (Hospitalization, Other)
  Sender: FDA-Public Use
  Company Number: JP-ANIPHARMA-2021-JP-000301

PATIENT
  Age: 61 Year
  Sex: Male

DRUGS (2)
  1. HORMONES [Concomitant]
     Active Substance: UNSPECIFIED INGREDIENT
     Route: 065
  2. CASODEX [Suspect]
     Active Substance: BICALUTAMIDE
     Indication: PROSTATE CANCER
     Dosage: 80 MG QD
     Route: 048
     Dates: end: 202007

REACTIONS (3)
  - Off label use [Recovered/Resolved]
  - Liver disorder [Unknown]
  - Metastases to bone [Unknown]

NARRATIVE: CASE EVENT DATE: 202007
